FAERS Safety Report 18931653 (Version 2)
Quarter: 2021Q1

REPORT INFORMATION
  Report Type: Spontaneous
  Country: BR (occurrence: BR)
  Receive Date: 20210224
  Receipt Date: 20210321
  Transmission Date: 20210420
  Serious: No
  Sender: FDA-Public Use
  Company Number: BR-JNJFOC-20210238744

PATIENT
  Age: 39 Year
  Sex: Female

DRUGS (2)
  1. QLAIRA [Concomitant]
     Active Substance: DIENOGEST\ESTRADIOL VALERATE
  2. XARELTO [Suspect]
     Active Substance: RIVAROXABAN
     Indication: THROMBOSIS PROPHYLAXIS
     Dosage: 10 MG, QD
     Route: 048
     Dates: start: 20210217, end: 20210219

REACTIONS (2)
  - Tremor [Unknown]
  - Palpitations [Recovered/Resolved]

NARRATIVE: CASE EVENT DATE: 202102
